FAERS Safety Report 18856012 (Version 1)
Quarter: 2021Q1

REPORT INFORMATION
  Report Type: Spontaneous
  Country: CA (occurrence: CA)
  Receive Date: 20210206
  Receipt Date: 20210206
  Transmission Date: 20210420
  Serious: Yes (Life-Threatening, Hospitalization, Other)
  Sender: FDA-Public Use
  Company Number: CA-TEVA-2021-CA-1876287

PATIENT
  Age: 4 Year
  Sex: Male
  Weight: 19 kg

DRUGS (10)
  1. HYDROCORTISONE. [Concomitant]
     Active Substance: HYDROCORTISONE
  2. ONCASPAR [Concomitant]
     Active Substance: PEGASPARGASE
  3. FUROSEMIDE. [Concomitant]
     Active Substance: FUROSEMIDE
  4. CYTARABINE INJECTION [Concomitant]
     Active Substance: CYTARABINE
  5. POLYETHYLENE GLYCOL [Concomitant]
     Active Substance: POLYETHYLENE GLYCOLS
  6. METHOTREXATE. [Concomitant]
     Active Substance: METHOTREXATE
  7. IMATINIB. [Concomitant]
     Active Substance: IMATINIB MESYLATE
  8. OMEPRAZOLE. [Concomitant]
     Active Substance: OMEPRAZOLE
  9. METHOTREXATE. [Suspect]
     Active Substance: METHOTREXATE
     Indication: ACUTE LYMPHOCYTIC LEUKAEMIA RECURRENT
     Route: 042
  10. CASPOFUNGIN [Concomitant]
     Active Substance: CASPOFUNGIN

REACTIONS (2)
  - SARS-CoV-2 test negative [Unknown]
  - Mucosal inflammation [Unknown]
